FAERS Safety Report 10111016 (Version 2)
Quarter: 2014Q2

REPORT INFORMATION
  Report Type: Report from Study
  Country: PT (occurrence: PT)
  Receive Date: 20140425
  Receipt Date: 20140425
  Transmission Date: 20141212
  Serious: Yes (Death, Hospitalization)
  Sender: FDA-Public Use
  Company Number: PT-BAXTER-2014BAX019239

PATIENT
  Sex: Female

DRUGS (12)
  1. EXTRANEAL [Suspect]
     Indication: RENAL FAILURE CHRONIC
     Route: 033
     Dates: start: 20090209, end: 20140411
  2. EXTRANEAL [Suspect]
     Indication: PERITONEAL DIALYSIS
  3. PHYSIONEAL 40 GLUCOSE 2.27% SOLUTION FOR PERITONEAL DIALYSIS [Suspect]
     Indication: RENAL FAILURE CHRONIC
     Route: 033
     Dates: start: 20090209, end: 20140411
  4. PHYSIONEAL 40 GLUCOSE 2.27% SOLUTION FOR PERITONEAL DIALYSIS [Suspect]
     Indication: PERITONEAL DIALYSIS
  5. NUTRINEAL PD4 [Suspect]
     Indication: RENAL FAILURE CHRONIC
     Route: 033
     Dates: start: 20090209, end: 20140411
  6. NUTRINEAL PD4 [Suspect]
     Indication: PERITONEAL DIALYSIS
  7. PERINDOPRIL [Concomitant]
     Indication: PRODUCT USED FOR UNKNOWN INDICATION
  8. NIFEDIPINE [Concomitant]
     Indication: PRODUCT USED FOR UNKNOWN INDICATION
  9. CARVEDILOL [Concomitant]
     Indication: PRODUCT USED FOR UNKNOWN INDICATION
  10. FOLIC ACID [Concomitant]
     Indication: PRODUCT USED FOR UNKNOWN INDICATION
  11. PARICALCITOL [Concomitant]
     Indication: PRODUCT USED FOR UNKNOWN INDICATION
  12. B COMPLEX [Concomitant]
     Indication: PRODUCT USED FOR UNKNOWN INDICATION

REACTIONS (3)
  - Disease complication [Fatal]
  - Myocardial infarction [Unknown]
  - Pulmonary oedema [Unknown]
